FAERS Safety Report 21803554 (Version 1)
Quarter: 2023Q1

REPORT INFORMATION
  Report Type: Spontaneous
  Country: BR (occurrence: BR)
  Receive Date: 20230101
  Receipt Date: 20230101
  Transmission Date: 20230418
  Serious: Yes (Other)
  Sender: FDA-Public Use
  Company Number: BR-ABBVIE-4255075

PATIENT
  Age: 15 Year
  Sex: Male
  Weight: 55 kg

DRUGS (4)
  1. HUMIRA [Suspect]
     Active Substance: ADALIMUMAB
     Indication: Crohn^s disease
     Dosage: 40 MILLIGRAM, EVERY 15 DAYS
     Route: 058
  2. HUMIRA [Suspect]
     Active Substance: ADALIMUMAB
     Dosage: 40 MILLIGRAM, LOADING DOSE
     Route: 058
     Dates: start: 2009
  3. HUMIRA [Suspect]
     Active Substance: ADALIMUMAB
     Dosage: 40 MILLIGRAM
  4. AZATHIOPRINE [Concomitant]
     Active Substance: AZATHIOPRINE
     Indication: Crohn^s disease
     Dosage: DURING THE HUMIRA LOADING DOSE
     Route: 048

REACTIONS (6)
  - Anal fistula [Not Recovered/Not Resolved]
  - Fistula [Recovered/Resolved]
  - Crohn^s disease [Not Recovered/Not Resolved]
  - Fistula [Not Recovered/Not Resolved]
  - Intentional product misuse [Unknown]
  - Colectomy total [Unknown]

NARRATIVE: CASE EVENT DATE: 20090209
